FAERS Safety Report 7703276-8 (Version None)
Quarter: 2011Q3

REPORT INFORMATION
  Report Type: 
  Country: None (occurrence: None)
  Receive Date: 20110823
  Receipt Date: 20110817
  Transmission Date: 20111222
  Serious: Yes (Other)
  Sender: FDA-Public Use
  Company Number: BE-BRISTOL-MYERS SQUIBB COMPANY-15978125

PATIENT
  Sex: Male

DRUGS (2)
  1. ORENCIA [Suspect]
     Dosage: 750MG/INFUSION
     Dates: start: 20110310
  2. CORTISONE ACETATE [Suspect]
     Dosage: RECEIVES HIGH DOSAGES ,SINCE A VERY LONG TIME

REACTIONS (1)
  - STRESS FRACTURE [None]
